FAERS Safety Report 6665481-1 (Version None)
Quarter: 2010Q2

REPORT INFORMATION
  Report Type: 
  Country: None (occurrence: None)
  Receive Date: 20100402
  Receipt Date: 20100325
  Transmission Date: 20101027
  Serious: Yes (Other)
  Sender: FDA-Public Use
  Company Number: US-JNJFOC-20100308788

PATIENT
  Sex: Male

DRUGS (6)
  1. INVEGA SUSTENNA [Suspect]
     Indication: SCHIZOAFFECTIVE DISORDER
  2. INVEGA [Suspect]
     Indication: SCHIZOAFFECTIVE DISORDER
     Route: 048
  3. INVEGA [Suspect]
     Route: 048
  4. LITHIUM [Concomitant]
     Indication: SCHIZOAFFECTIVE DISORDER
  5. LAMICTAL CD [Concomitant]
     Indication: SCHIZOAFFECTIVE DISORDER
  6. ARTANE [Concomitant]
     Indication: SCHIZOAFFECTIVE DISORDER

REACTIONS (5)
  - FEELING ABNORMAL [None]
  - INCORRECT DOSE ADMINISTERED [None]
  - SCHIZOAFFECTIVE DISORDER [None]
  - SUICIDAL IDEATION [None]
  - TREATMENT NONCOMPLIANCE [None]
